FAERS Safety Report 6097864-5 (Version None)
Quarter: 2009Q1

REPORT INFORMATION
  Report Type: 
  Country: None (occurrence: None)
  Receive Date: 20090227
  Receipt Date: 20090223
  Transmission Date: 20090719
  Serious: Yes (Other)
  Sender: FDA-Public Use
  Company Number: US-JNJCH-2009005098

PATIENT
  Age: 12 Year
  Sex: Male
  Weight: 40.8 kg

DRUGS (4)
  1. CHILDREN'S ZYRTEC ALLERGY SYRUP [Suspect]
     Indication: RHINORRHOEA
     Dosage: TEXT:TWO TEASPOONS EVERY 24 HOURS
     Route: 048
     Dates: start: 20090216, end: 20090217
  2. LAMICTAL [Concomitant]
     Indication: CONVULSION
     Dosage: TEXT:100 MG ONCE A DAY
     Route: 065
  3. FELBATOL [Concomitant]
     Indication: CONVULSION
     Dosage: TEXT:900 MG TWICE A DAY
     Route: 065
  4. DRUG, UNSPECIFIED [Concomitant]
     Indication: CONVULSION
     Dosage: TEXT:10 MG ONCE A DAY
     Route: 065

REACTIONS (1)
  - HYPERSENSITIVITY [None]
